FAERS Safety Report 5783709-7 (Version None)
Quarter: 2008Q2

REPORT INFORMATION
  Report Type: 
  Country: None (occurrence: None)
  Receive Date: 20080605
  Receipt Date: 20080325
  Transmission Date: 20081010
  Serious: No
  Sender: FDA-Public Use
  Company Number: A0717034A

PATIENT
  Age: 43 Year
  Sex: Female
  Weight: 86.4 kg

DRUGS (2)
  1. ALLI [Suspect]
     Indication: DRUG USE FOR UNKNOWN INDICATION
     Dates: start: 20080315, end: 20080318
  2. ANTACID TAB [Concomitant]

REACTIONS (5)
  - CONSTIPATION [None]
  - DISCOMFORT [None]
  - FEELING ABNORMAL [None]
  - FLATULENCE [None]
  - RECTAL DISCHARGE [None]
